FAERS Safety Report 12088912 (Version 1)
Quarter: 2016Q1

REPORT INFORMATION
  Report Type: Spontaneous
  Country: US (occurrence: US)
  Receive Date: 20160218
  Receipt Date: 20160218
  Transmission Date: 20160526
  Serious: No
  Sender: FDA-Public Use
  Company Number: US-GLAXOSMITHKLINE-US2016023218

PATIENT
  Sex: Male
  Weight: 88 kg

DRUGS (1)
  1. EQUATE NICOTINE [Suspect]
     Active Substance: NICOTINE
     Indication: SMOKING CESSATION THERAPY
     Dosage: 7 MG, UNK
     Dates: start: 20160214, end: 20160214

REACTIONS (4)
  - Rash pruritic [Recovered/Resolved]
  - Cold sweat [Recovered/Resolved]
  - Nervousness [Recovered/Resolved]
  - Heart rate increased [Recovered/Resolved]
